FAERS Safety Report 6041293-7 (Version None)
Quarter: 2009Q1

REPORT INFORMATION
  Report Type: 
  Country: None (occurrence: None)
  Receive Date: 20090116
  Receipt Date: 20080929
  Transmission Date: 20090719
  Serious: No
  Sender: FDA-Public Use
  Company Number: US-BRISTOL-MYERS SQUIBB COMPANY-14351183

PATIENT
  Age: 53 Year
  Sex: Male

DRUGS (3)
  1. ABILIFY [Suspect]
     Dosage: DISCONTINUED FOR ONE MONTH AND THEN RESTARTED (CURRENT DOSE 15MG TWICE DAILY).
  2. BUSPAR [Concomitant]
  3. LEXAPRO [Concomitant]

REACTIONS (3)
  - CONFUSIONAL STATE [None]
  - DISORIENTATION [None]
  - MUSCLE TWITCHING [None]
